FAERS Safety Report 5294477-X (Version None)
Quarter: 2007Q2

REPORT INFORMATION
  Report Type: 
  Country: None (occurrence: None)
  Receive Date: 20070412
  Receipt Date: 20070403
  Transmission Date: 20071010
  Serious: Yes (Hospitalization)
  Sender: FDA-Public Use
  Company Number: -BAXTER-2007BH003340

PATIENT
  Age: 47 Year
  Sex: Female
  Weight: 63 kg

DRUGS (3)
  1. EXTRANEAL [Suspect]
     Indication: DRUG USE FOR UNKNOWN INDICATION
     Route: 033
     Dates: start: 19990701
  2. PERITONEAL DIALYSIS SOLUTION 1.36% [Concomitant]
     Route: 033
     Dates: start: 19990701
  3. PERITONEAL DIALYSIS SOLUTION 2.27% [Concomitant]
     Route: 033
     Dates: start: 19990701

REACTIONS (4)
  - NAUSEA [None]
  - PERITONITIS BACTERIAL [None]
  - PYREXIA [None]
  - SCLEROSING ENCAPSULATING PERITONITIS [None]
